FAERS Safety Report 24226702 (Version 1)
Quarter: 2024Q3

REPORT INFORMATION
  Report Type: Report from Study
  Country: US (occurrence: None)
  Receive Date: 20240820
  Receipt Date: 20240820
  Transmission Date: 20241017
  Serious: Yes (Other)
  Sender: ASTRAZENECA
  Company Number: 2022A333679

PATIENT
  Age: 857 Month
  Sex: Female
  Weight: 66.2 kg

DRUGS (1)
  1. SYMBICORT [Suspect]
     Active Substance: BUDESONIDE\FORMOTEROL FUMARATE DIHYDRATE
     Indication: Asthma
     Dosage: 80/4.5 MG,TWO INHALATIONS TWO TIMES A DAY,
     Route: 055
     Dates: start: 2020

REACTIONS (4)
  - Acquired gene mutation [Not Recovered/Not Resolved]
  - Platelet count increased [Recovering/Resolving]
  - Platelet disorder [Unknown]
  - Product dispensing error [Not Recovered/Not Resolved]

NARRATIVE: CASE EVENT DATE: 20220301
